FAERS Safety Report 12155769 (Version 2)
Quarter: 2016Q2

REPORT INFORMATION
  Report Type: Report from Study
  Country: DE (occurrence: DE)
  Receive Date: 20160307
  Receipt Date: 20160408
  Transmission Date: 20160815
  Serious: Yes (Hospitalization, Other)
  Sender: FDA-Public Use
  Company Number: DE-ROCHE-1708808

PATIENT
  Age: 37 Year
  Sex: Female
  Weight: 72 kg

DRUGS (8)
  1. EPIRUBICIN [Suspect]
     Active Substance: EPIRUBICIN
     Indication: BREAST CANCER
     Dosage: MOST RECENT DOSE PRIOR TO SAE- 17/DEC/2015
     Route: 042
     Dates: start: 20151116
  2. PACLITAXEL. [Suspect]
     Active Substance: PACLITAXEL
     Indication: BREAST CANCER
     Dosage: MOST RECENT DOSE PRIOR TO SAE- 02/FEB/2016
     Route: 042
     Dates: start: 20160104
  3. PERTUZUMAB [Suspect]
     Active Substance: PERTUZUMAB
     Dosage: MAINTANENCE DOSE, MOST RECENT DOSE PRIOR TO SAE- 25/JAN/2016
     Route: 042
  4. THYROXIN [Concomitant]
     Active Substance: LEVOTHYROXINE
     Dosage: 62.5
     Route: 065
     Dates: start: 20151020
  5. PERTUZUMAB [Suspect]
     Active Substance: PERTUZUMAB
     Indication: BREAST CANCER
     Dosage: LOADING DOSE,
     Route: 042
     Dates: start: 20160104
  6. THYROXIN [Concomitant]
     Active Substance: LEVOTHYROXINE
     Route: 065
     Dates: start: 20160220
  7. TRASTUZUMAB [Suspect]
     Active Substance: TRASTUZUMAB
     Dosage: MAINTANENCE DOSE, LAST DOSE PRIOR TO SAE 25/JAN/2016
     Route: 042
  8. TRASTUZUMAB [Suspect]
     Active Substance: TRASTUZUMAB
     Indication: BREAST CANCER
     Dosage: LOADING DOSE
     Route: 042
     Dates: start: 20160104

REACTIONS (3)
  - Alveolitis [Recovered/Resolved]
  - Pyrexia [Recovered/Resolved]
  - Interstitial lung disease [Recovered/Resolved]

NARRATIVE: CASE EVENT DATE: 20160206
